FAERS Safety Report 23041008 (Version 1)
Quarter: 2023Q4

REPORT INFORMATION
  Report Type: Spontaneous
  Country: US (occurrence: US)
  Receive Date: 20231006
  Receipt Date: 20231006
  Transmission Date: 20240110
  Serious: Yes (Other)
  Sender: FDA-Public Use
  Company Number: US-009507513-2310USA000897

PATIENT
  Age: 77 Year
  Sex: Male

DRUGS (1)
  1. CUBICIN [Suspect]
     Active Substance: DAPTOMYCIN
     Indication: Staphylococcal bacteraemia
     Dosage: 900 MILLIGRAM, QD; ON WEEK 3
     Route: 042

REACTIONS (1)
  - Eosinophilic pneumonia acute [Recovered/Resolved]
